FAERS Safety Report 8451323-0 (Version None)
Quarter: 2012Q2

REPORT INFORMATION
  Report Type: 
  Country: None (occurrence: None)
  Receive Date: 20120620
  Receipt Date: 20120614
  Transmission Date: 20120825
  Serious: No
  Sender: FDA-Public Use
  Company Number: US-B.I. PHARMACEUTICALS,INC./RIDGEFIELD-2012-BP-13756BP

PATIENT
  Sex: Male

DRUGS (5)
  1. PRADAXA [Suspect]
     Indication: ATRIAL FIBRILLATION
     Dosage: 300 MG
     Route: 048
     Dates: start: 20110401
  2. PEPCID [Concomitant]
     Indication: GASTRIC ULCER
     Dates: start: 20110401
  3. DILTIAZEM HYDROCHOLORIDE [Concomitant]
     Indication: ATRIAL FIBRILLATION
     Dates: start: 20110401
  4. FLINTSTONES MULTIVITAMIN [Concomitant]
     Indication: SUPPLEMENTATION THERAPY
  5. ASCORBIC ACID [Concomitant]
     Indication: SUPPLEMENTATION THERAPY

REACTIONS (1)
  - TOOTH DISCOLOURATION [None]
